FAERS Safety Report 9242283 (Version 1)
Quarter: 2013Q2

REPORT INFORMATION
  Report Type: Report from Study
  Country: US (occurrence: US)
  Receive Date: 20130419
  Receipt Date: 20130419
  Transmission Date: 20140414
  Serious: Yes (Other)
  Sender: FDA-Public Use
  Company Number: US-ACTELION-A-NJ2013-82118

PATIENT
  Age: 56 Year
  Sex: Male

DRUGS (1)
  1. VELETRI [Suspect]
     Indication: PULMONARY ARTERIAL HYPERTENSION
     Dosage: 16 NG/KG, PER MIN
     Route: 041
     Dates: start: 20130228

REACTIONS (4)
  - Skin exfoliation [Unknown]
  - Dysgeusia [Unknown]
  - Tongue discolouration [Unknown]
  - Tongue disorder [Unknown]
